FAERS Safety Report 6225587-8 (Version None)
Quarter: 2009Q2

REPORT INFORMATION
  Report Type: 
  Country: None (occurrence: None)
  Receive Date: 20090612
  Receipt Date: 20090427
  Transmission Date: 20091009
  Serious: No
  Sender: FDA-Public Use
  Company Number: US-ABBOTT-09P-163-0570227-00

PATIENT
  Sex: Female

DRUGS (1)
  1. HUMIRA [Suspect]
     Indication: COLITIS ULCERATIVE
     Dates: start: 20070501

REACTIONS (8)
  - DRY SKIN [None]
  - DYSPNOEA [None]
  - PAIN [None]
  - PARAESTHESIA [None]
  - PNEUMONIA [None]
  - SKIN FISSURES [None]
  - THROAT IRRITATION [None]
  - VULVOVAGINAL MYCOTIC INFECTION [None]
